FAERS Safety Report 24355825 (Version 2)
Quarter: 2024Q4

REPORT INFORMATION
  Report Type: Spontaneous
  Country: US (occurrence: GB)
  Receive Date: 20240924
  Receipt Date: 20241004
  Transmission Date: 20250115
  Serious: Yes (Other)
  Sender: TEVA
  Company Number: GB-TEVA-VS-3246269

PATIENT
  Age: 29 Year
  Sex: Male

DRUGS (4)
  1. FLUOXETINE [Suspect]
     Active Substance: FLUOXETINE HYDROCHLORIDE
     Indication: Major depression
     Route: 065
  2. FLUOXETINE [Suspect]
     Active Substance: FLUOXETINE HYDROCHLORIDE
     Indication: Major depression
     Dosage: DOSE INCREASED
     Route: 065
  3. BUPROPION [Suspect]
     Active Substance: BUPROPION
     Indication: Major depression
     Dosage: DOSE INCREASED
     Route: 065
  4. BUPROPION [Suspect]
     Active Substance: BUPROPION
     Indication: Major depression
     Route: 065

REACTIONS (3)
  - Dry mouth [Unknown]
  - Erectile dysfunction [Unknown]
  - Drug ineffective [Unknown]
